FAERS Safety Report 7167881-2 (Version None)
Quarter: 2010Q4

REPORT INFORMATION
  Report Type: 
  Country: None (occurrence: None)
  Receive Date: 20101216
  Receipt Date: 20101206
  Transmission Date: 20110411
  Serious: Yes (Other)
  Sender: FDA-Public Use
  Company Number: US-ELI_LILLY_AND_COMPANY-US201012002055

PATIENT
  Age: 76 Year
  Sex: Female

DRUGS (2)
  1. HUMULIN N [Suspect]
     Indication: TYPE 2 DIABETES MELLITUS
     Dosage: 10 U, 2/D
     Dates: start: 20080801
  2. HUMULIN N [Suspect]
     Dosage: 10 U, 2/D
     Dates: start: 20080801

REACTIONS (1)
  - VISUAL ACUITY REDUCED [None]
